FAERS Safety Report 8246233-8 (Version None)
Quarter: 2012Q1

REPORT INFORMATION
  Report Type: 
  Country: None (occurrence: None)
  Receive Date: 20120330
  Receipt Date: 20101101
  Transmission Date: 20120608
  Serious: No
  Sender: FDA-Public Use
  Company Number: US-MYLANLABS-2010S1020022

PATIENT
  Age: 78 Year
  Sex: Male

DRUGS (2)
  1. ALBUTEROL SULATE [Suspect]
     Indication: DYSPNOEA
     Route: 055
  2. IPRATROPIUM BROMIDE [Concomitant]

REACTIONS (1)
  - DRUG INEFFECTIVE [None]
